FAERS Safety Report 4686087-X (Version None)
Quarter: 2005Q2

REPORT INFORMATION
  Report Type: 
  Country: None (occurrence: None)
  Receive Date: 20050609
  Receipt Date: 19930712
  Transmission Date: 20051028
  Serious: Yes (Hospitalization)
  Sender: FDA-Public Use
  Company Number: 199302293HAG

PATIENT
  Age: 50 Year
  Sex: Male

DRUGS (6)
  1. LASIX [Suspect]
  2. AMIODARONE HYDROCHLORIDE [Suspect]
     Dates: start: 19890101
  3. NIFEDIPINE [Suspect]
     Dates: end: 19911027
  4. ASPIRIN [Suspect]
  5. CHLOTRIDE [Suspect]
     Dates: end: 19911026
  6. CAPTOPRIL [Suspect]

REACTIONS (1)
  - HYPERTHYROIDISM [None]
